FAERS Safety Report 7498677-X (Version None)
Quarter: 2011Q2

REPORT INFORMATION
  Report Type: 
  Country: None (occurrence: None)
  Receive Date: 20110524
  Receipt Date: 20110517
  Transmission Date: 20111010
  Serious: Yes (Hospitalization)
  Sender: FDA-Public Use
  Company Number: IE-US-EMD SERONO, INC.-7055921

PATIENT
  Sex: Female

DRUGS (5)
  1. REBIF [Suspect]
     Indication: RELAPSING-REMITTING MULTIPLE SCLEROSIS
     Dates: start: 20110418
  2. REBIF [Suspect]
  3. REBIF [Suspect]
     Dates: start: 20110428, end: 20110428
  4. REBIF [Suspect]
     Dates: start: 20110501
  5. REBIF [Suspect]

REACTIONS (8)
  - GAIT DISTURBANCE [None]
  - NAUSEA [None]
  - DIPLOPIA [None]
  - DECREASED APPETITE [None]
  - GINGIVAL BLEEDING [None]
  - PULMONARY EMBOLISM [None]
  - MULTIPLE SCLEROSIS [None]
  - DIZZINESS [None]
